FAERS Safety Report 8536465-3 (Version None)
Quarter: 2012Q3

REPORT INFORMATION
  Report Type: 
  Country: None (occurrence: None)
  Receive Date: 20120712
  Receipt Date: 20120626
  Transmission Date: 20120928
  Serious: Yes (Other)
  Sender: FDA-Public Use
  Company Number: 1333893

PATIENT
  Age: 45 Year
  Sex: Male

DRUGS (1)
  1. METHOTREXATE [Suspect]
     Indication: PRODUCT USED FOR UNKNOWN INDICATION
     Dosage: 20 MG MILLIGRAM(S), 1 WEEK

REACTIONS (4)
  - HYPERSENSITIVITY [None]
  - EYE PRURITUS [None]
  - EYE SWELLING [None]
  - SWELLING FACE [None]
